FAERS Safety Report 15676140 (Version 1)
Quarter: 2018Q4

REPORT INFORMATION
  Report Type: Spontaneous
  Country: US (occurrence: US)
  Receive Date: 20181129
  Receipt Date: 20181129
  Transmission Date: 20190205
  Serious: Yes (Life-Threatening, Hospitalization)
  Sender: FDA-Public Use
  Company Number: None

PATIENT
  Age: 44 Year
  Sex: Female

DRUGS (4)
  1. DRAMAMINE [Suspect]
     Active Substance: DIMENHYDRINATE
     Indication: PROPHYLAXIS AGAINST MOTION SICKNESS
     Route: 048
     Dates: start: 20030315, end: 20150804
  2. MELATONIN [Concomitant]
     Active Substance: MELATONIN
  3. GEODON [Concomitant]
     Active Substance: ZIPRASIDONE HYDROCHLORIDE\ZIPRASIDONE MESYLATE
  4. ABILIFY [Concomitant]
     Active Substance: ARIPIPRAZOLE

REACTIONS (4)
  - Delusion [None]
  - Psychotic disorder [None]
  - Amnesia [None]
  - Paranoia [None]

NARRATIVE: CASE EVENT DATE: 20150805
